FAERS Safety Report 23821788 (Version 2)
Quarter: 2024Q3

REPORT INFORMATION
  Report Type: Spontaneous
  Country: GB (occurrence: GR)
  Receive Date: 20240506
  Receipt Date: 20240830
  Transmission Date: 20241017
  Serious: Yes (Other)
  Sender: SUNOVION
  Company Number: GR-Accord-412318

PATIENT

DRUGS (2)
  1. ORGOVYX [Suspect]
     Active Substance: RELUGOLIX
     Indication: Prostate cancer
     Dosage: 3 PILLS ON THE FIRST DAY
     Route: 048
     Dates: start: 20240211
  2. ORGOVYX [Suspect]
     Active Substance: RELUGOLIX
     Dosage: 1 PILL FROM THE SECOND DAY
     Route: 048
     Dates: start: 20240212

REACTIONS (3)
  - Atrial fibrillation [Unknown]
  - Fatigue [Not Recovered/Not Resolved]
  - Asthenia [Not Recovered/Not Resolved]

NARRATIVE: CASE EVENT DATE: 20240201
